FAERS Safety Report 17762667 (Version 1)
Quarter: 2020Q2

REPORT INFORMATION
  Report Type: Report from Study
  Country: US (occurrence: US)
  Receive Date: 20200508
  Receipt Date: 20200508
  Transmission Date: 20200714
  Serious: Yes (Other)
  Sender: FDA-Public Use
  Company Number: US-GILEAD-2020-0464713

PATIENT
  Age: 82 Year
  Sex: Male

DRUGS (11)
  1. BUMEX [Concomitant]
     Active Substance: BUMETANIDE
  2. PRESERVISION AREDS [Concomitant]
     Active Substance: MINERALS\VITAMINS
  3. ALLOPURINOL. [Concomitant]
     Active Substance: ALLOPURINOL
  4. COREG [Concomitant]
     Active Substance: CARVEDILOL
  5. IDELALISIB [Suspect]
     Active Substance: IDELALISIB
     Indication: CHRONIC LYMPHOCYTIC LEUKAEMIA
     Dosage: 100 MG, BID
     Route: 065
  6. TYLENOL [Concomitant]
     Active Substance: ACETAMINOPHEN
  7. ELIQUIS [Concomitant]
     Active Substance: APIXABAN
  8. MULTIVITAMIN + MINERAL [Concomitant]
     Active Substance: MINERALS\VITAMINS
  9. PRAVASTINE [Concomitant]
     Active Substance: PRAVASTATIN SODIUM
  10. SPIRONOLACTONE. [Concomitant]
     Active Substance: SPIRONOLACTONE
  11. TIMOLOL. [Concomitant]
     Active Substance: TIMOLOL

REACTIONS (1)
  - Transfusion [Unknown]
